FAERS Safety Report 19132710 (Version 2)
Quarter: 2021Q2

REPORT INFORMATION
  Report Type: Spontaneous
  Country: FR (occurrence: FR)
  Receive Date: 20210413
  Receipt Date: 20210426
  Transmission Date: 20210717
  Serious: Yes (Life-Threatening)
  Sender: FDA-Public Use
  Company Number: FR-DAIICHI SANKYO EUROPE GMBH-DSE-2021-110773

PATIENT
  Age: 50 Year
  Sex: Male
  Weight: 73 kg

DRUGS (4)
  1. AGRASTAT [Suspect]
     Active Substance: TIROFIBAN HYDROCHLORIDE
     Indication: ACUTE CORONARY SYNDROME
     Dosage: 0.15?G/KG/MIN
     Route: 041
     Dates: start: 20210309, end: 20210309
  2. ASPEGIC                            /00002701/ [Suspect]
     Active Substance: ASPIRIN
     Indication: ACUTE CORONARY SYNDROME
     Dosage: 250 MG, TOTAL
     Route: 041
     Dates: start: 20210309, end: 20210309
  3. HEPARINA SODICA PANPHARMA [Suspect]
     Active Substance: HEPARIN SODIUM
     Indication: ACUTE CORONARY SYNDROME
     Dosage: BOLUS OF 4900 IU THEN 500 IU/ML, SPEED 2ML/HOUR
     Route: 041
     Dates: start: 20210309, end: 20210309
  4. EFIENT [Suspect]
     Active Substance: PRASUGREL HYDROCHLORIDE
     Dosage: 60 MG, TOTAL
     Route: 048
     Dates: start: 20210309, end: 20210309

REACTIONS (2)
  - Compartment syndrome [Recovered/Resolved]
  - Haematoma muscle [Recovered/Resolved]

NARRATIVE: CASE EVENT DATE: 20210309
